FAERS Safety Report 5517560-X (Version None)
Quarter: 2007Q4

REPORT INFORMATION
  Report Type: 
  Country: None (occurrence: None)
  Receive Date: 20071114
  Receipt Date: 20071108
  Transmission Date: 20080405
  Serious: Yes (Other)
  Sender: FDA-Public Use
  Company Number: US-SHR-US-2007-036098

PATIENT
  Age: 42 Year
  Sex: Female
  Weight: 129.25 kg

DRUGS (1)
  1. BETASERON [Suspect]
     Indication: RELAPSING-REMITTING MULTIPLE SCLEROSIS
     Dosage: 8 MIU, EVERY 2D
     Route: 058
     Dates: start: 20070326

REACTIONS (2)
  - BLOOD TRIGLYCERIDES INCREASED [None]
  - INSULIN RESISTANT DIABETES [None]
